FAERS Safety Report 5246431-1 (Version None)
Quarter: 2007Q1

REPORT INFORMATION
  Report Type: 
  Country: None (occurrence: None)
  Receive Date: 20070222
  Receipt Date: 20070222
  Transmission Date: 20070707
  Serious: Yes (Life-Threatening, Other)
  Sender: FDA-Public Use
  Company Number: None

PATIENT
  Age: 48 Year
  Sex: Female
  Weight: 63.5036 kg

DRUGS (2)
  1. CYMBALTA [Suspect]
     Indication: DEPRESSION
     Dosage: SEE IMAGE
     Route: 048
     Dates: start: 20040506, end: 20070222
  2. CYMBALTA [Suspect]
     Indication: NEURALGIA
     Dosage: SEE IMAGE
     Route: 048
     Dates: start: 20040506, end: 20070222

REACTIONS (15)
  - ANXIETY [None]
  - BALANCE DISORDER [None]
  - DIARRHOEA [None]
  - DRUG WITHDRAWAL SYNDROME [None]
  - FALL [None]
  - FEELING ABNORMAL [None]
  - GAIT DISTURBANCE [None]
  - INFLUENZA LIKE ILLNESS [None]
  - MENTAL DISORDER [None]
  - NAUSEA [None]
  - PAIN [None]
  - PARAESTHESIA [None]
  - VISION BLURRED [None]
  - VOMITING [None]
  - WEIGHT INCREASED [None]
